FAERS Safety Report 8991281 (Version 6)
Quarter: 2014Q2

REPORT INFORMATION
  Report Type: Report from Study
  Country: CA (occurrence: CA)
  Receive Date: 20121231
  Receipt Date: 20140528
  Transmission Date: 20141212
  Serious: Yes (Other)
  Sender: FDA-Public Use
  Company Number: CA-ROCHE-1173565

PATIENT
  Age: 48 Year
  Sex: Female

DRUGS (11)
  1. OMALIZUMAB [Suspect]
     Indication: ASTHMA
     Route: 058
     Dates: start: 20080327
  2. OMALIZUMAB [Suspect]
     Route: 058
     Dates: start: 20090622
  3. OMALIZUMAB [Suspect]
     Route: 065
     Dates: start: 20080314
  4. OMALIZUMAB [Suspect]
     Route: 058
     Dates: start: 20090330
  5. OMALIZUMAB [Suspect]
     Route: 058
     Dates: start: 20130826
  6. OMALIZUMAB [Suspect]
     Route: 058
     Dates: start: 20140213
  7. OMALIZUMAB [Suspect]
     Route: 058
     Dates: end: 20140227
  8. ALVESCO [Concomitant]
     Indication: PRODUCT USED FOR UNKNOWN INDICATION
     Dosage: UNK
     Route: 065
  9. SYMBICORT [Concomitant]
  10. SINGULAIR [Concomitant]
  11. AIROMIR [Concomitant]

REACTIONS (13)
  - Rhinitis allergic [Unknown]
  - Hypersensitivity [Unknown]
  - Heart rate increased [Not Recovered/Not Resolved]
  - Hypertension [Recovered/Resolved]
  - Nasopharyngitis [Unknown]
  - Malaise [Unknown]
  - Oropharyngeal pain [Unknown]
  - Sinus headache [Unknown]
  - Headache [Unknown]
  - Seasonal allergy [Unknown]
  - Cough [Unknown]
  - Lacrimation increased [Unknown]
  - Eye pruritus [Unknown]
